FAERS Safety Report 6742034-8 (Version None)
Quarter: 2010Q2

REPORT INFORMATION
  Report Type: 
  Country: None (occurrence: None)
  Receive Date: 20100526
  Receipt Date: 20100513
  Transmission Date: 20101027
  Serious: Yes (Death, Other)
  Sender: FDA-Public Use
  Company Number: GR-TEVA-235458ISR

PATIENT
  Age: 52 Year
  Sex: Male

DRUGS (3)
  1. CISPLATIN [Suspect]
     Indication: METASTATIC NEOPLASM
  2. ETOPOSIDE [Suspect]
     Indication: METASTATIC NEOPLASM
  3. BLEOMYCIN [Suspect]
     Indication: METASTATIC NEOPLASM

REACTIONS (3)
  - LEUKOPENIA [None]
  - PYREXIA [None]
  - UPPER GASTROINTESTINAL HAEMORRHAGE [None]
